FAERS Safety Report 4450647-1 (Version None)
Quarter: 2004Q3

REPORT INFORMATION
  Report Type: 
  Country: None (occurrence: None)
  Receive Date: 20040914
  Receipt Date: 20040907
  Transmission Date: 20050211
  Serious: Yes (Death, Other)
  Sender: FDA-Public Use
  Company Number: 2004231175US

PATIENT
  Sex: Female

DRUGS (19)
  1. CELEBREX [Suspect]
     Dosage: 200 MG, BID,
     Dates: start: 19990720
  2. CELEBREX [Suspect]
     Dosage: 200 MG, BID
     Dates: start: 20010101
  3. ZOLOFT [Concomitant]
  4. SYNTHROID [Concomitant]
  5. PRILOSEC [Concomitant]
  6. PREDNISONE [Concomitant]
  7. PREMARIN [Concomitant]
  8. DEMADEX [Concomitant]
  9. ACETYLSALICYLIC ACID [Concomitant]
  10. LANOXIN [Concomitant]
  11. LIPITOR [Concomitant]
  12. GLUCOPHAGE [Concomitant]
  13. HYDROCHLOROQUINE (HYDROXYCHLOROQUINE) [Concomitant]
  14. CLARITIN-D [Concomitant]
  15. CLARITIN-D [Concomitant]
  16. CALTRATE [Concomitant]
  17. CALTRATE-D (ERGOCALCIFEROL) [Concomitant]
  18. FLOVENT (FLUTICASONE PROIONATE) [Concomitant]
  19. SEREVENT [Concomitant]

REACTIONS (19)
  - AORTIC VALVE INCOMPETENCE [None]
  - ARTERIAL OCCLUSIVE DISEASE [None]
  - ASTHENIA [None]
  - CARDIAC DISORDER [None]
  - CARDIAC FAILURE CONGESTIVE [None]
  - CHRONIC OBSTRUCTIVE AIRWAYS DISEASE [None]
  - COLON POLYPECTOMY [None]
  - COUGH [None]
  - FALL [None]
  - FEMORAL ARTERIAL STENOSIS [None]
  - GASTROOESOPHAGEAL REFLUX DISEASE [None]
  - HERPES ZOSTER [None]
  - INJURY [None]
  - IRON DEFICIENCY ANAEMIA [None]
  - MITRAL VALVE INCOMPETENCE [None]
  - POST PROCEDURAL HAEMORRHAGE [None]
  - PYELONEPHRITIS [None]
  - RIB FRACTURE [None]
  - SEPSIS [None]
